FAERS Safety Report 5564055-3 (Version None)
Quarter: 2007Q4

REPORT INFORMATION
  Report Type: 
  Country: None (occurrence: None)
  Receive Date: 20071217
  Receipt Date: 20071211
  Transmission Date: 20080405
  Serious: Yes (Other)
  Sender: FDA-Public Use
  Company Number: US-BOEHRINGER INGELHEIM PHARMACEUTICALS, INC.-2007-DE-07331GD

PATIENT
  Age: 35 Year
  Sex: Male

DRUGS (7)
  1. NEVIRAPINE [Suspect]
     Indication: HIV INFECTION
  2. LAMIVUDINE [Suspect]
     Indication: HIV INFECTION
  3. TENOFOVIR DISOPROXIL FUMARATE [Suspect]
     Indication: HIV INFECTION
  4. AZT [Suspect]
     Indication: HIV INFECTION
  5. DDC [Suspect]
     Indication: HIV INFECTION
  6. NELFINAVIR [Suspect]
     Indication: HIV INFECTION
  7. LAMIVUDINE + ZIDOVUDINE [Suspect]
     Indication: HIV INFECTION

REACTIONS (7)
  - BLEEDING VARICOSE VEIN [None]
  - HEPATIC FIBROSIS [None]
  - HEPATOSPLENOMEGALY [None]
  - LIPODYSTROPHY ACQUIRED [None]
  - LIVER FUNCTION TEST ABNORMAL [None]
  - PORTAL HYPERTENSION [None]
  - THROMBOCYTOPENIA [None]
